FAERS Safety Report 9189798 (Version 1)
Quarter: 2013Q1

REPORT INFORMATION
  Report Type: Spontaneous
  Country: CO (occurrence: CO)
  Receive Date: 20130326
  Receipt Date: 20130326
  Transmission Date: 20140127
  Serious: Yes (Other)
  Sender: FDA-Public Use
  Company Number: CO-PFIZER INC-2013096025

PATIENT
  Age: 54 Year
  Sex: Female

DRUGS (1)
  1. MEDROL [Suspect]
     Dosage: UNK
     Dates: end: 2010

REACTIONS (2)
  - Blindness [Unknown]
  - Lung disorder [Unknown]
